FAERS Safety Report 15653089 (Version 4)
Quarter: 2019Q1

REPORT INFORMATION
  Report Type: Report from Study
  Country: US (occurrence: US)
  Receive Date: 20181123
  Receipt Date: 20190320
  Transmission Date: 20190417
  Serious: Yes (Hospitalization)
  Sender: FDA-Public Use
  Company Number: US-ACTELION-A-NJ2018-182307

PATIENT
  Age: 83 Year
  Sex: Male

DRUGS (4)
  1. KEPPRA [Concomitant]
     Active Substance: LEVETIRACETAM
  2. UPTRAVI [Suspect]
     Active Substance: SELEXIPAG
     Indication: PULMONARY ARTERIAL HYPERTENSION
     Route: 048
  3. OPSUMIT [Suspect]
     Active Substance: MACITENTAN
     Indication: PULMONARY ARTERIAL HYPERTENSION
     Dosage: UNK
     Route: 048
     Dates: start: 20181115
  4. ESCITALOPRAM [Concomitant]
     Active Substance: ESCITALOPRAM OXALATE

REACTIONS (13)
  - Hospitalisation [Unknown]
  - Back injury [Unknown]
  - Blood potassium increased [Unknown]
  - Product dose omission [Unknown]
  - Dehydration [Unknown]
  - Blood creatinine increased [Unknown]
  - Back pain [Unknown]
  - Mineral supplementation [Unknown]
  - Constipation [Unknown]
  - Somnolence [Unknown]
  - Iron deficiency [Unknown]
  - Fall [Unknown]
  - Seizure prophylaxis [Unknown]

NARRATIVE: CASE EVENT DATE: 201811
